FAERS Safety Report 5296653-9 (Version None)
Quarter: 2007Q2

REPORT INFORMATION
  Report Type: 
  Country: None (occurrence: None)
  Receive Date: 20070413
  Receipt Date: 20070403
  Transmission Date: 20071010
  Serious: Yes (Hospitalization, Other)
  Sender: FDA-Public Use
  Company Number: US-PFIZER INC-2007008936

PATIENT
  Sex: Male
  Weight: 72.6 kg

DRUGS (3)
  1. NEURONTIN [Suspect]
     Indication: NEURALGIA
     Dates: start: 19991201, end: 20000101
  2. EFFEXOR [Concomitant]
  3. ANALGESICS [Concomitant]

REACTIONS (3)
  - ILL-DEFINED DISORDER [None]
  - MENTAL DISORDER [None]
  - SUICIDE ATTEMPT [None]
